FAERS Safety Report 13195095 (Version 9)
Quarter: 2017Q3

REPORT INFORMATION
  Report Type: Report from Study
  Country: US (occurrence: US)
  Receive Date: 20170207
  Receipt Date: 20170816
  Transmission Date: 20171127
  Serious: Yes (Hospitalization)
  Sender: FDA-Public Use
  Company Number: US-B.I. PHARMACEUTICALS,INC./RIDGEFIELD-2017-BI-005464

PATIENT
  Age: 50 Year
  Sex: Female
  Weight: 63.5 kg

DRUGS (11)
  1. AMOXICILLIN. [Concomitant]
     Active Substance: AMOXICILLIN
     Indication: TOOTH EXTRACTION
     Route: 048
     Dates: start: 20170125
  2. MOBIC [Concomitant]
     Active Substance: MELOXICAM
     Indication: ARTHRALGIA
     Dosage: DAILY DOSE: 7.5MG PRN
     Route: 048
     Dates: start: 2015
  3. MOBIC [Concomitant]
     Active Substance: MELOXICAM
     Indication: BACK PAIN
  4. PRILOSEC [Concomitant]
     Active Substance: OMEPRAZOLE MAGNESIUM
     Indication: DYSPEPSIA
     Route: 048
     Dates: start: 1990
  5. ACETAMINOPHEN/PHENYLEPHRINE HCL [Concomitant]
     Indication: SEASONAL ALLERGY
     Dosage: DAILY DOSE: 5MG PRN
     Route: 048
     Dates: start: 2013
  6. EMPAGLIFLOZIN [Suspect]
     Active Substance: EMPAGLIFLOZIN
     Indication: TYPE 1 DIABETES MELLITUS
     Route: 048
     Dates: start: 20161110, end: 20170125
  7. NOVOLOG [Concomitant]
     Active Substance: INSULIN ASPART
     Indication: TYPE 1 DIABETES MELLITUS
     Dosage: DAILY DOSE: 30 UNITS
     Route: 058
     Dates: start: 1989
  8. LISINOPRIL. [Concomitant]
     Active Substance: LISINOPRIL
     Indication: PROPHYLAXIS
     Route: 048
     Dates: start: 2010
  9. EMPAGLIFLOZIN [Suspect]
     Active Substance: EMPAGLIFLOZIN
     Route: 048
     Dates: start: 20170131
  10. VITAMIN D3 MAX [Concomitant]
     Indication: VITAMIN D DEFICIENCY
     Dosage: MAX
     Route: 048
     Dates: start: 2015
  11. ZOCOR [Concomitant]
     Active Substance: SIMVASTATIN
     Indication: HYPERLIPIDAEMIA
     Route: 048
     Dates: start: 2010

REACTIONS (14)
  - Anion gap increased [Recovered/Resolved]
  - Blood potassium increased [Recovered/Resolved]
  - Vomiting [Recovered/Resolved]
  - Blood ketone body increased [Recovered/Resolved]
  - Dehydration [Recovered/Resolved]
  - Abdominal pain [Recovered/Resolved]
  - Diabetic ketoacidosis [Recovered/Resolved]
  - Blood gases abnormal [Recovered/Resolved]
  - Nausea [Recovered/Resolved]
  - Gastroenteritis [Recovered/Resolved]
  - Non-cardiac chest pain [Recovered/Resolved]
  - Urine ketone body present [Recovered/Resolved]
  - Blood glucose increased [Recovered/Resolved]
  - Blood bicarbonate increased [Recovered/Resolved]

NARRATIVE: CASE EVENT DATE: 20170126
